FAERS Safety Report 8054970-3 (Version None)
Quarter: 2012Q1

REPORT INFORMATION
  Report Type: 
  Country: None (occurrence: None)
  Receive Date: 20120119
  Receipt Date: 20120116
  Transmission Date: 20120608
  Serious: Yes (Other)
  Sender: FDA-Public Use
  Company Number: US-PFIZER INC-2012012239

PATIENT
  Sex: Female
  Weight: 75.737 kg

DRUGS (6)
  1. BENICAR [Concomitant]
     Dosage: 40 MG, UNK
  2. LIPITOR [Suspect]
     Indication: BLOOD CHOLESTEROL INCREASED
     Dosage: 20 MG, 1X/DAY
     Route: 048
  3. MULTI-VITAMINS [Concomitant]
     Dosage: UNK
  4. ACETYLSALICYLIC ACID [Concomitant]
     Dosage: 81 MG, UNK
  5. TENEX [Concomitant]
     Dosage: UNK
  6. AQUAZIDE [Concomitant]
     Dosage: UNK

REACTIONS (1)
  - BREAST CANCER [None]
